FAERS Safety Report 17078339 (Version 1)
Quarter: 2019Q4

REPORT INFORMATION
  Report Type: Spontaneous
  Country: US (occurrence: US)
  Receive Date: 20191126
  Receipt Date: 20191126
  Transmission Date: 20200122
  Serious: No
  Sender: FDA-Public Use
  Company Number: US-009507513-1911USA002829

PATIENT
  Age: 48 Year
  Sex: Female
  Weight: 70 kg

DRUGS (4)
  1. SINGULAIR [Suspect]
     Active Substance: MONTELUKAST SODIUM
     Indication: FEV1/FVC RATIO DECREASED
     Dosage: 10 MILLIGRAM, QD
     Route: 048
     Dates: start: 2010
  2. TIOTROPIUM BROMIDE [Concomitant]
     Active Substance: TIOTROPIUM BROMIDE
     Indication: FEV1/FVC RATIO DECREASED
     Dosage: 18 MICROGRAM, QD
     Dates: start: 2010
  3. FORMOTEROL FUMARATE [Concomitant]
     Active Substance: FORMOTEROL FUMARATE
     Indication: FEV1/FVC RATIO DECREASED
     Dosage: 4.5 MICROGRAM/PUFF 2-3 PUFFS TWICE DAILY
     Dates: start: 2010
  4. BUDESONIDE. [Concomitant]
     Active Substance: BUDESONIDE
     Indication: FEV1/FVC RATIO DECREASED
     Dosage: 160 MICROGRAM/PUFF;  2-3 PUFFS TWICE DAILY
     Dates: start: 2010

REACTIONS (1)
  - Product use in unapproved indication [Unknown]

NARRATIVE: CASE EVENT DATE: 2010
